FAERS Safety Report 17043797 (Version 2)
Quarter: 2020Q1

REPORT INFORMATION
  Report Type: Spontaneous
  Country: US (occurrence: US)
  Receive Date: 20191118
  Receipt Date: 20200128
  Transmission Date: 20200409
  Serious: Yes (Other)
  Sender: FDA-Public Use
  Company Number: US-BRISTOL-MYERS SQUIBB COMPANY-BMS-2019-107436

PATIENT
  Sex: Female

DRUGS (1)
  1. ORENCIA [Suspect]
     Active Substance: ABATACEPT
     Indication: MYOPATHY
     Dosage: 125 MG/ML, EVERY WEEK
     Route: 058
     Dates: start: 20190904

REACTIONS (2)
  - Intentional product use issue [Unknown]
  - Adverse event [Unknown]
